FAERS Safety Report 5755526-5 (Version None)
Quarter: 2008Q2

REPORT INFORMATION
  Report Type: 
  Country: None (occurrence: None)
  Receive Date: 20080602
  Receipt Date: 20080519
  Transmission Date: 20081010
  Serious: Yes (Life-Threatening)
  Sender: FDA-Public Use
  Company Number: JP-GENENTECH-261218

PATIENT
  Sex: Female

DRUGS (8)
  1. HERCEPTIN [Suspect]
     Indication: BREAST CANCER METASTATIC
     Dosage: 4 MG/KG, QD
     Route: 041
     Dates: start: 20071114
  2. RINDERON [Suspect]
     Indication: PAIN
     Dosage: 2 MG, BID
     Route: 048
     Dates: start: 20080321
  3. ARIMIDEX [Concomitant]
     Indication: DRUG USE FOR UNKNOWN INDICATION
     Dates: start: 20071001, end: 20080501
  4. ROHYPNOL [Concomitant]
     Indication: DRUG USE FOR UNKNOWN INDICATION
  5. FENTANYL-100 [Concomitant]
     Dates: start: 20071101
  6. PAXIL [Concomitant]
     Indication: DRUG USE FOR UNKNOWN INDICATION
     Dates: start: 20080201, end: 20080501
  7. FAMOTIDINE [Concomitant]
     Indication: DRUG USE FOR UNKNOWN INDICATION
     Dates: start: 20080321, end: 20080501
  8. ZOMETA [Concomitant]
     Indication: DRUG USE FOR UNKNOWN INDICATION

REACTIONS (1)
  - PNEUMONIA [None]
